FAERS Safety Report 10908111 (Version 1)
Quarter: 2015Q1

REPORT INFORMATION
  Report Type: Spontaneous
  Country: US (occurrence: US)
  Receive Date: 20150312
  Receipt Date: 20150312
  Transmission Date: 20150721
  Serious: No
  Sender: FDA-Public Use
  Company Number: US-INCYTE CORPORATION-2014IN003900

PATIENT
  Age: 73 Year
  Sex: Male

DRUGS (10)
  1. MAGNESIUM [Concomitant]
     Active Substance: MAGNESIUM
  2. JAKAFI [Suspect]
     Active Substance: RUXOLITINIB
     Dosage: 15 MG, QD FOR 3 DAYS, THEN SKIP ONE DAY, THEN REPEAT
     Route: 048
  3. TACROLIMUS. [Concomitant]
     Active Substance: TACROLIMUS
  4. VITAMINS NOS [Concomitant]
     Active Substance: VITAMINS
  5. JAKAFI [Suspect]
     Active Substance: RUXOLITINIB
     Dosage: 15 MG, QD FOR 2 DAYS AND SKIP A DAY
     Route: 048
     Dates: start: 201410
  6. HYDROCODONE [Concomitant]
     Active Substance: HYDROCODONE
  7. OMEPRAZOLE. [Concomitant]
     Active Substance: OMEPRAZOLE
  8. LOVENOX [Concomitant]
     Active Substance: ENOXAPARIN SODIUM
  9. JAKAFI [Suspect]
     Active Substance: RUXOLITINIB
     Indication: POLYCYTHAEMIA VERA
     Dosage: 20 MG, QD
     Dates: start: 201407, end: 201410
  10. MYCOPHENOLATE MOFETIL. [Concomitant]
     Active Substance: MYCOPHENOLATE MOFETIL

REACTIONS (7)
  - Headache [Unknown]
  - Drug prescribing error [Unknown]
  - Back pain [Not Recovered/Not Resolved]
  - Platelet count decreased [Unknown]
  - Insomnia [Unknown]
  - Sinusitis [Unknown]
  - Epistaxis [Unknown]

NARRATIVE: CASE EVENT DATE: 201410
